FAERS Safety Report 6603142-5 (Version None)
Quarter: 2010Q1

REPORT INFORMATION
  Report Type: 
  Country: None (occurrence: None)
  Receive Date: 20100226
  Receipt Date: 20100217
  Transmission Date: 20100710
  Serious: Yes (Life-Threatening, Hospitalization, Disabling, Other)
  Sender: FDA-Public Use
  Company Number: AU-PFIZER INC-2010013188

PATIENT
  Age: 55 Year
  Sex: Female
  Weight: 52 kg

DRUGS (11)
  1. ZYVOX [Suspect]
     Indication: NOCARDIOSIS
     Dosage: 600 MG, 2X/DAY
     Route: 048
     Dates: start: 20090525, end: 20090707
  2. CYCLOPHOSPHAMIDE [Suspect]
     Indication: LUPUS NEPHRITIS
     Dosage: 50 MG, 1X/DAY
     Route: 048
     Dates: end: 20090627
  3. NEXIUM [Concomitant]
     Indication: REFLUX OESOPHAGITIS
     Dosage: 40 MG, 2X/DAY
     Route: 048
  4. PREDNISOLONE [Concomitant]
     Indication: LUPUS NEPHRITIS
     Dosage: 20 MG, 1X/DAY
     Route: 048
  5. CRESTOR [Concomitant]
     Indication: BLOOD CHOLESTEROL INCREASED
     Dosage: 10 MG, 1X/DAY
     Route: 048
  6. PRAZOSIN [Concomitant]
     Indication: HYPERTENSION
     Dosage: 1 MG, 2X/DAY
     Route: 048
  7. AVAPRO [Concomitant]
     Indication: HYPERTENSION
     Dosage: 300/12.5MG DAILY
  8. ADALAT [Concomitant]
     Indication: HYPERTENSION
     Dosage: 60 MG, 1X/DAY
  9. AMIODARONE [Concomitant]
     Indication: ATRIAL FIBRILLATION
     Dosage: 50 MG, 1X/DAY
  10. WARFARIN [Concomitant]
     Indication: ATRIAL FIBRILLATION
     Dosage: 2 MG, 1X/DAY
  11. ERYTHROPOIETIN [Concomitant]
     Indication: RENAL FAILURE CHRONIC
     Dosage: 4000 IU, WEEKLY

REACTIONS (7)
  - ABDOMINAL PAIN [None]
  - DIARRHOEA [None]
  - MALAISE [None]
  - PANCYTOPENIA [None]
  - PROCALCITONIN INCREASED [None]
  - RENAL FAILURE ACUTE [None]
  - VOMITING [None]
